FAERS Safety Report 18747658 (Version 2)
Quarter: 2021Q1

REPORT INFORMATION
  Report Type: Spontaneous
  Country: US (occurrence: US)
  Receive Date: 20210115
  Receipt Date: 20210129
  Transmission Date: 20210419
  Serious: Yes (Other)
  Sender: FDA-Public Use
  Company Number: US-ALLERGAN-2101911US

PATIENT
  Sex: Female

DRUGS (7)
  1. GENTAMICIN. [Concomitant]
     Active Substance: GENTAMICIN
     Indication: PALLIATIVE CARE
  2. DUREZOL [Concomitant]
     Active Substance: DIFLUPREDNATE
     Indication: PROPHYLAXIS
     Dosage: UNK
     Route: 047
     Dates: start: 2020, end: 202101
  3. PROLENSA [Concomitant]
     Active Substance: BROMFENAC SODIUM
     Indication: PROPHYLAXIS
     Dosage: UNK
     Route: 047
     Dates: start: 2020, end: 202101
  4. REFRESH OPTIVE SENSITIVE [Suspect]
     Active Substance: CARBOXYMETHYLCELLULOSE SODIUM\GLYCERIN
     Indication: DRY EYE
     Dosage: 2 GTT, 2?3 PER DAY OR AS NEEDED
     Route: 047
     Dates: start: 2015, end: 202101
  5. DUREZOL [Concomitant]
     Active Substance: DIFLUPREDNATE
     Indication: PALLIATIVE CARE
  6. GENTAMICIN. [Concomitant]
     Active Substance: GENTAMICIN
     Indication: PROPHYLAXIS
     Dosage: UNK
     Route: 047
     Dates: start: 2020, end: 202101
  7. PROLENSA [Concomitant]
     Active Substance: BROMFENAC SODIUM
     Indication: PALLIATIVE CARE

REACTIONS (1)
  - Cataract [Unknown]
